FAERS Safety Report 5105959-5 (Version None)
Quarter: 2006Q3

REPORT INFORMATION
  Report Type: 
  Country: None (occurrence: None)
  Receive Date: 20060912
  Receipt Date: 20060830
  Transmission Date: 20061208
  Serious: Yes (Death, Other)
  Sender: FDA-Public Use
  Company Number: 2006044320

PATIENT
  Age: 80 Year
  Sex: Female

DRUGS (2)
  1. BEXTRA [Suspect]
     Indication: ILL-DEFINED DISORDER
     Dates: start: 20021001, end: 20040301
  2. VIOXX [Suspect]
     Indication: ILL-DEFINED DISORDER
     Dates: start: 20021001, end: 20040301

REACTIONS (10)
  - BRAIN STEM INFARCTION [None]
  - BUNDLE BRANCH BLOCK [None]
  - CARDIAC ARREST [None]
  - CEREBELLAR INFARCTION [None]
  - CEREBRAL ATROPHY [None]
  - CEREBRAL INFARCTION [None]
  - CEREBRAL ISCHAEMIA [None]
  - DYSPHAGIA [None]
  - LACUNAR INFARCTION [None]
  - MYOCARDIAL INFARCTION [None]
